FAERS Safety Report 19206204 (Version 1)
Quarter: 2021Q2

REPORT INFORMATION
  Report Type: Spontaneous
  Country: CN (occurrence: CN)
  Receive Date: 20210503
  Receipt Date: 20210503
  Transmission Date: 20210717
  Serious: Yes (Other)
  Sender: FDA-Public Use
  Company Number: CN-PFIZER INC-2021454260

PATIENT
  Age: 77 Year
  Sex: Female

DRUGS (2)
  1. NORVASC [Suspect]
     Active Substance: AMLODIPINE BESYLATE
     Indication: HYPERTENSION
     Dosage: ONE TABLET, DAILY (EVERY MORNING)
     Route: 048
     Dates: start: 202101
  2. JIAO GU LAN [Concomitant]
     Dosage: UNK

REACTIONS (4)
  - Disease recurrence [Unknown]
  - Feeling hot [Unknown]
  - Drug dependence [Unknown]
  - Bradycardia [Unknown]

NARRATIVE: CASE EVENT DATE: 202101
